FAERS Safety Report 7033456-9 (Version None)
Quarter: 2010Q4

REPORT INFORMATION
  Report Type: 
  Country: None (occurrence: None)
  Receive Date: 20101007
  Receipt Date: 20100713
  Transmission Date: 20110411
  Serious: Yes (Hospitalization)
  Sender: FDA-Public Use
  Company Number: PHHO2010US08767

PATIENT
  Sex: Female
  Weight: 70.5 kg

DRUGS (2)
  1. CERTICAN [Suspect]
     Indication: RENAL TRANSPLANT
     Dosage: UNK
     Route: 048
     Dates: start: 20060703, end: 20100311
  2. COUMADIN [Concomitant]

REACTIONS (6)
  - BLEEDING TIME PROLONGED [None]
  - BLOOD CREATININE INCREASED [None]
  - DIABETES MELLITUS INADEQUATE CONTROL [None]
  - DIASTOLIC DYSFUNCTION [None]
  - INTERNATIONAL NORMALISED RATIO INCREASED [None]
  - OEDEMA PERIPHERAL [None]
